FAERS Safety Report 4714424-6 (Version None)
Quarter: 2005Q3

REPORT INFORMATION
  Report Type: 
  Country: None (occurrence: None)
  Receive Date: 20050705
  Receipt Date: 20041217
  Transmission Date: 20060218
  Serious: Yes (Other)
  Sender: FDA-Public Use
  Company Number: 2004-0007847

PATIENT
  Age: 71 Year
  Sex: Male
  Weight: 96.1626 kg

DRUGS (8)
  1. VIREAD [Suspect]
     Indication: HIV INFECTION
     Dosage: 300 MG, 1 IN 1 D, ORAL
     Route: 048
     Dates: start: 20020322, end: 20041020
  2. ZIAGEN [Concomitant]
  3. KALETRA [Concomitant]
  4. LAMIVUDINE [Concomitant]
  5. TESTOSTERONE (TESTONSTERONE) [Concomitant]
  6. PROPECIA [Concomitant]
  7. LISINOPRIL [Concomitant]
  8. LIPITOR [Concomitant]

REACTIONS (1)
  - FANCONI SYNDROME ACQUIRED [None]
